FAERS Safety Report 6731139-3 (Version None)
Quarter: 2010Q2

REPORT INFORMATION
  Report Type: 
  Country: None (occurrence: None)
  Receive Date: 20100518
  Receipt Date: 20100511
  Transmission Date: 20101027
  Serious: Yes (Life-Threatening)
  Sender: FDA-Public Use
  Company Number: JP-ROCHE-692814

PATIENT
  Sex: Male
  Weight: 52 kg

DRUGS (17)
  1. AVASTIN [Suspect]
     Indication: RECTAL CANCER METASTATIC
     Route: 041
     Dates: start: 20090812, end: 20100217
  2. FLUOROURACIL [Suspect]
     Indication: RECTAL CANCER METASTATIC
     Route: 041
     Dates: start: 20090312, end: 20090312
  3. FLUOROURACIL [Suspect]
     Route: 041
     Dates: start: 20090430, end: 20090430
  4. FLUOROURACIL [Suspect]
     Route: 041
     Dates: start: 20090513, end: 20090527
  5. FLUOROURACIL [Suspect]
     Route: 041
     Dates: start: 20090610, end: 20090624
  6. FLUOROURACIL [Suspect]
     Route: 041
     Dates: start: 20090708, end: 20100217
  7. ELPLAT [Concomitant]
     Route: 041
     Dates: start: 20090312, end: 20090312
  8. ELPLAT [Concomitant]
     Route: 041
     Dates: start: 20090430, end: 20090430
  9. ELPLAT [Concomitant]
     Route: 041
     Dates: start: 20090513, end: 20090527
  10. ELPLAT [Concomitant]
     Route: 041
     Dates: start: 20090610, end: 20090624
  11. ELPLAT [Concomitant]
     Route: 041
     Dates: start: 20090708, end: 20090826
  12. ELPLAT [Concomitant]
     Route: 041
     Dates: start: 20091222, end: 20100217
  13. ISOVORIN [Concomitant]
     Dosage: DRUG NAME: ISOVORIN(LEVOFOLINATE CALCIUM)
     Route: 041
     Dates: start: 20090312, end: 20090312
  14. ISOVORIN [Concomitant]
     Route: 041
     Dates: start: 20090430, end: 20090430
  15. ISOVORIN [Concomitant]
     Route: 041
     Dates: start: 20090513, end: 20090527
  16. ISOVORIN [Concomitant]
     Route: 041
     Dates: start: 20090610, end: 20090624
  17. ISOVORIN [Concomitant]
     Route: 041
     Dates: start: 20090708, end: 20100217

REACTIONS (2)
  - INTERSTITIAL LUNG DISEASE [None]
  - PULMONARY ALVEOLAR HAEMORRHAGE [None]
